FAERS Safety Report 4701797-3 (Version None)
Quarter: 2005Q2

REPORT INFORMATION
  Report Type: 
  Country: None (occurrence: None)
  Receive Date: 20050627
  Receipt Date: 20050613
  Transmission Date: 20051028
  Serious: Yes (Other)
  Sender: FDA-Public Use
  Company Number: 2005064256

PATIENT
  Age: 53 Year
  Sex: Female
  Weight: 86.1834 kg

DRUGS (9)
  1. BEXTRA [Suspect]
     Indication: SYSTEMIC LUPUS ERYTHEMATOSUS
     Dosage: 40 MG (20 MG, 2 IN 1 D), ORAL
     Route: 048
     Dates: start: 20030101
  2. URIMAX (HYOSCYAMINE SULFATE, METHENAMINE, METHYLTHIONINIUM CHLORIDE, P [Concomitant]
  3. PRILOSEC [Concomitant]
  4. ACIPHEX [Concomitant]
  5. PYRIDIUM (PHENAZOPYRIDINE HYDROCHLORIDE) [Concomitant]
  6. MEPERGAN FORTIS (PETHIDINE HYDROCHLORIDE, PROMETHAZINE HYDROCHLORIDE) [Concomitant]
  7. MOBIC [Concomitant]
  8. MACRODANTIN [Concomitant]
  9. LEVBID (HYOSCYAMINE SULFATE) [Concomitant]

REACTIONS (8)
  - ANKLE OPERATION [None]
  - ARTHRALGIA [None]
  - BLOOD PRESSURE INCREASED [None]
  - BONE DISORDER [None]
  - CHRONIC OBSTRUCTIVE PULMONARY DISEASE [None]
  - DYSPNOEA [None]
  - ERYTHEMA [None]
  - RASH PRURITIC [None]
